FAERS Safety Report 5347368-X (Version None)
Quarter: 2007Q2

REPORT INFORMATION
  Report Type: 
  Country: None (occurrence: None)
  Receive Date: 20070606
  Receipt Date: 20070530
  Transmission Date: 20071010
  Serious: Yes (Death)
  Sender: FDA-Public Use
  Company Number: US-JNJFOC-20070600187

PATIENT
  Sex: Female
  Weight: 81.65 kg

DRUGS (5)
  1. FENTANYL TRANSDERMAL SYSTEM [Suspect]
     Indication: PAIN
     Route: 062
  2. LYRICA [Suspect]
     Route: 048
  3. LYRICA [Suspect]
     Indication: ARTHRALGIA
     Route: 048
  4. VALIUM [Concomitant]
     Indication: DRUG USE FOR UNKNOWN INDICATION
     Route: 048
  5. BENADRYL [Concomitant]
     Indication: DRUG USE FOR UNKNOWN INDICATION
     Route: 048

REACTIONS (2)
  - ANALGESIC DRUG LEVEL ABOVE THERAPEUTIC [None]
  - MULTIPLE DRUG OVERDOSE [None]
